FAERS Safety Report 9778121 (Version 2)
Quarter: 2013Q4

REPORT INFORMATION
  Report Type: Report from Study
  Country: US (occurrence: US)
  Receive Date: 20131223
  Receipt Date: 20131226
  Transmission Date: 20140711
  Serious: Yes (Hospitalization)
  Sender: FDA-Public Use
  Company Number: US-JNJFOC-20131212478

PATIENT
  Age: 17 Year
  Sex: Male
  Weight: 69.6 kg

DRUGS (1)
  1. INFLIXIMAB [Suspect]
     Indication: CROHN^S DISEASE
     Route: 042
     Dates: start: 20090803, end: 20130810

REACTIONS (1)
  - Crohn^s disease [Recovered/Resolved]
